FAERS Safety Report 9758453 (Version 5)
Quarter: 2014Q1

REPORT INFORMATION
  Report Type: Spontaneous
  Country: DE (occurrence: DE)
  Receive Date: 20131216
  Receipt Date: 20140303
  Transmission Date: 20141002
  Serious: Yes (Life-Threatening, Hospitalization, Other)
  Sender: FDA-Public Use
  Company Number: DE-PFIZER INC-2013326034

PATIENT
  Age: 44 Year
  Sex: Male
  Weight: 87 kg

DRUGS (8)
  1. VFEND [Suspect]
     Indication: ASPERGILLOMA
     Dosage: 200 MG, 2X/DAY
     Route: 048
     Dates: start: 20130716, end: 20130810
  2. VFEND [Suspect]
     Indication: ASPERGILLUS INFECTION
     Dosage: UNK
     Dates: start: 201308
  3. PANTOPRAZOLE [Concomitant]
     Indication: GASTRITIS PROPHYLAXIS
     Dosage: 40 MG, DAILY
  4. URSOFALK [Concomitant]
     Indication: LIVER DISORDER
     Dosage: 50 MG, 2X/DAY
  5. PREDNISOLONE [Concomitant]
     Dosage: 60-50-40-30MG, TAPERING OFF
  6. POSACONAZOLE [Concomitant]
     Indication: ASPERGILLUS INFECTION
     Dosage: 400 MG, 2X/DAY
  7. POSACONAZOLE [Concomitant]
     Dosage: 60-50-40-30MG, TAPERING OFF
  8. NEUPOGEN [Concomitant]
     Route: 058

REACTIONS (11)
  - General physical health deterioration [Not Recovered/Not Resolved]
  - Skin haemorrhage [Not Recovered/Not Resolved]
  - Haemoptysis [Not Recovered/Not Resolved]
  - Bone marrow failure [Not Recovered/Not Resolved]
  - Thrombocytopenia [Not Recovered/Not Resolved]
  - Hallucination [Unknown]
  - Liver function test abnormal [Unknown]
  - Anxiety [Unknown]
  - Panic attack [Unknown]
  - Skin reaction [Unknown]
  - Dizziness [Unknown]
